FAERS Safety Report 6656687-6 (Version None)
Quarter: 2010Q1

REPORT INFORMATION
  Report Type: 
  Country: None (occurrence: None)
  Receive Date: 20100324
  Receipt Date: 20100308
  Transmission Date: 20100710
  Serious: Yes (Hospitalization, Disabling)
  Sender: FDA-Public Use
  Company Number: 2009AL003048

PATIENT
  Age: 36 Year
  Sex: Male
  Weight: 88.905 kg

DRUGS (33)
  1. METOCLOPRAMIDE TABLETS [Suspect]
     Indication: GASTROOESOPHAGEAL REFLUX DISEASE
     Dosage: UNKNOWN;UNK;PO
     Route: 048
     Dates: start: 20020101, end: 20070301
  2. PROTONIX [Concomitant]
  3. ALBUTEROL [Concomitant]
  4. SINGULAIR [Concomitant]
  5. PRILOSEC [Concomitant]
  6. ZANTAC [Concomitant]
  7. CLARITIN [Concomitant]
  8. NEXIUM [Concomitant]
  9. ACCOLATE [Concomitant]
  10. PREDNISONE [Concomitant]
  11. GAVISCON [Concomitant]
  12. BENADRYL [Concomitant]
  13. RESTORIL [Concomitant]
  14. KLONOPIN [Concomitant]
  15. COMBIVENT [Concomitant]
  16. REMERON [Concomitant]
  17. CLONAZEPAM [Concomitant]
  18. VENLAFAXINE HCL EXTENDED-RELEASE [Concomitant]
  19. NITROGLYCERIN [Concomitant]
  20. MORPHINE SULFATE [Concomitant]
  21. NALOXONE [Concomitant]
  22. ACETAMINOPHEN [Concomitant]
  23. MAALOX [Concomitant]
  24. COLACE [Concomitant]
  25. TEMAZEPAM [Concomitant]
  26. PROPOXYPHENE HCL AND ACETAMINOPHEN [Concomitant]
  27. MILK OF MAGNESIA TAB [Concomitant]
  28. ONDANSETRON [Concomitant]
  29. HYDROMORPHONE HCL [Concomitant]
  30. KETOROLAC TROMETHAMINE [Concomitant]
  31. CIPRO [Concomitant]
  32. PERCOCET [Concomitant]
  33. OXYCODONE + ACETAMINOPHEN TABLETS [Concomitant]

REACTIONS (38)
  - ABDOMINAL DISCOMFORT [None]
  - ANXIETY [None]
  - ASTHMA [None]
  - BLOOD POTASSIUM DECREASED [None]
  - BLOOD UREA INCREASED [None]
  - CHEST DISCOMFORT [None]
  - CONDITION AGGRAVATED [None]
  - DECREASED ACTIVITY [None]
  - DEFORMITY [None]
  - DRUG RESISTANCE [None]
  - DRUG TOLERANCE [None]
  - DYSPHONIA [None]
  - ECONOMIC PROBLEM [None]
  - EMOTIONAL DISTRESS [None]
  - EXTRAPYRAMIDAL DISORDER [None]
  - FLANK PAIN [None]
  - HAEMATOCHEZIA [None]
  - HAEMATOCRIT DECREASED [None]
  - HAEMOGLOBIN DECREASED [None]
  - INCREASED UPPER AIRWAY SECRETION [None]
  - INJURY [None]
  - INSOMNIA [None]
  - NAUSEA [None]
  - NEPHROLITHIASIS [None]
  - NEUTROPHIL COUNT DECREASED [None]
  - NOCTURIA [None]
  - OVERDOSE [None]
  - PAIN [None]
  - PELVI-URETERIC OBSTRUCTION [None]
  - POOR QUALITY SLEEP [None]
  - PROSTATITIS [None]
  - RECTAL HAEMORRHAGE [None]
  - RENAL CYST [None]
  - SOMNOLENCE [None]
  - STRESS [None]
  - TARDIVE DYSKINESIA [None]
  - URETERIC DILATATION [None]
  - URINARY HESITATION [None]
